FAERS Safety Report 6476721-6 (Version None)
Quarter: 2009Q4

REPORT INFORMATION
  Report Type: 
  Country: None (occurrence: None)
  Receive Date: 20091207
  Receipt Date: 20091126
  Transmission Date: 20100525
  Serious: Yes (Death, Hospitalization, Other)
  Sender: FDA-Public Use
  Company Number: PHHY2009CA46375

PATIENT
  Sex: Male

DRUGS (4)
  1. CLOZARIL [Suspect]
     Indication: DEMENTIA
     Route: 048
  2. CLOZARIL [Suspect]
     Indication: PARKINSON'S DISEASE
  3. CLOZARIL [Suspect]
     Indication: ABNORMAL BEHAVIOUR
  4. CLOZARIL [Suspect]
     Indication: IMMOBILE

REACTIONS (1)
  - DECUBITUS ULCER [None]
